FAERS Safety Report 10913457 (Version 7)
Quarter: 2016Q3

REPORT INFORMATION
  Report Type: Spontaneous
  Country: US (occurrence: US)
  Receive Date: 20150313
  Receipt Date: 20160926
  Transmission Date: 20161109
  Serious: Yes (Hospitalization, Other)
  Sender: FDA-Public Use
  Company Number: US-009507513-1503USA006213

PATIENT
  Sex: Female
  Weight: 68.48 kg

DRUGS (5)
  1. CALCIUM (UNSPECIFIED) [Concomitant]
     Active Substance: CALCIUM
     Indication: PRODUCT USED FOR UNKNOWN INDICATION
     Dosage: 1800, QD
     Route: 065
     Dates: start: 2002
  2. FOSAMAX [Suspect]
     Active Substance: ALENDRONATE SODIUM
     Indication: OSTEOPOROSIS
     Dosage: 70 MG, QM
     Route: 048
     Dates: start: 200103, end: 200811
  3. VITAMIN D [Concomitant]
     Active Substance: CHOLECALCIFEROL
     Indication: PRODUCT USED FOR UNKNOWN INDICATION
     Dosage: 5000, QD
     Route: 065
     Dates: start: 2002
  4. ALENDRONATE SODIUM. [Suspect]
     Active Substance: ALENDRONATE SODIUM
     Indication: OSTEOPOROSIS
     Dosage: 70 MG, QM
     Route: 048
     Dates: start: 200812, end: 201208
  5. ASCORBIC ACID. [Concomitant]
     Active Substance: ASCORBIC ACID
     Indication: PRODUCT USED FOR UNKNOWN INDICATION
     Dosage: UNK, QD
     Route: 065
     Dates: start: 2002

REACTIONS (13)
  - Low turnover osteopathy [Unknown]
  - Inappropriate schedule of drug administration [Unknown]
  - Gastrooesophageal reflux disease [Unknown]
  - Gait disturbance [Unknown]
  - Acquired oesophageal web [Unknown]
  - Hysterectomy [Unknown]
  - Gastritis [Unknown]
  - Skeletal injury [Unknown]
  - Femur fracture [Recovering/Resolving]
  - Fall [Unknown]
  - Haemorrhagic anaemia [Unknown]
  - Device failure [Recovering/Resolving]
  - Osteopenia [Unknown]

NARRATIVE: CASE EVENT DATE: 200103
